FAERS Safety Report 5023865-1 (Version None)
Quarter: 2006Q2

REPORT INFORMATION
  Report Type: 
  Country: None (occurrence: None)
  Receive Date: 20060426
  Receipt Date: 20060215
  Transmission Date: 20061013
  Serious: Yes (Other)
  Sender: FDA-Public Use
  Company Number: 2006024854

PATIENT
  Age: 79 Year
  Sex: Female
  Weight: 77.1115 kg

DRUGS (12)
  1. LYRICA [Suspect]
     Indication: NEUROPATHY PERIPHERAL
     Dates: start: 20051014, end: 20051001
  2. ZETIA [Concomitant]
  3. GABAPENTIN [Concomitant]
  4. METFORMIN [Concomitant]
  5. ENALAPRIL MALEATE [Concomitant]
  6. POTASSIUM (POTASSIUM) [Concomitant]
  7. FUROSEMIDE [Concomitant]
  8. METOPROLOL SUCCINATE [Concomitant]
  9. NIASPAN [Concomitant]
  10. GLIMEPIRIDE [Concomitant]
  11. OXYCONTIN [Concomitant]
  12. OXYCODONE (OXYCODONE) [Concomitant]

REACTIONS (3)
  - DIZZINESS [None]
  - MEMORY IMPAIRMENT [None]
  - SOMNOLENCE [None]
